FAERS Safety Report 9938204 (Version 1)
Quarter: 2014Q1

REPORT INFORMATION
  Report Type: Report from Study
  Country: US (occurrence: US)
  Receive Date: 20140303
  Receipt Date: 20140303
  Transmission Date: 20141002
  Serious: No
  Sender: FDA-Public Use
  Company Number: US-ABBVIE-13P-163-1030339-00

PATIENT
  Age: 32 Year
  Sex: Female
  Weight: 63.56 kg

DRUGS (12)
  1. HUMIRA [Suspect]
     Indication: RHEUMATOID ARTHRITIS
     Route: 058
     Dates: start: 20121214
  2. ARAVA [Concomitant]
     Indication: PRODUCT USED FOR UNKNOWN INDICATION
  3. PLAQUENIL [Concomitant]
     Indication: PRODUCT USED FOR UNKNOWN INDICATION
  4. CELEBREX [Concomitant]
     Indication: PRODUCT USED FOR UNKNOWN INDICATION
  5. ZANAFLEX [Concomitant]
     Indication: RHEUMATOID ARTHRITIS
     Dosage: AT NIGHT
  6. TYLENOL #3 [Concomitant]
     Indication: PAIN
  7. HYDROCODONE [Concomitant]
     Indication: PAIN
  8. SYNTHROID [Concomitant]
     Indication: THYROID DISORDER
  9. SINGULAR [Concomitant]
     Indication: PRODUCT USED FOR UNKNOWN INDICATION
  10. ALBUTEROL [Concomitant]
     Indication: ASTHMA
     Route: 055
  11. ADDERALL [Concomitant]
     Indication: ATTENTION DEFICIT/HYPERACTIVITY DISORDER
  12. CLONIPINE [Concomitant]
     Indication: ANXIETY

REACTIONS (3)
  - Arthralgia [Not Recovered/Not Resolved]
  - Injection site pain [Not Recovered/Not Resolved]
  - Injection site pain [Not Recovered/Not Resolved]
